FAERS Safety Report 12994583 (Version 1)
Quarter: 2016Q4

REPORT INFORMATION
  Report Type: Spontaneous
  Country: BR (occurrence: BR)
  Receive Date: 20161202
  Receipt Date: 20161202
  Transmission Date: 20170207
  Serious: Yes (Other)
  Sender: FDA-Public Use
  Company Number: BR-PFIZER INC-2016557949

PATIENT
  Age: 88 Year
  Sex: Female
  Weight: 60 kg

DRUGS (1)
  1. LYRICA [Suspect]
     Active Substance: PREGABALIN
     Indication: SPINAL PAIN
     Dosage: 150 MG (2 TABLETS), DAILY
     Route: 048
     Dates: start: 2014, end: 2014

REACTIONS (3)
  - Blood pressure fluctuation [Unknown]
  - Fall [Unknown]
  - Spinal fracture [Unknown]
